FAERS Safety Report 25882257 (Version 2)
Quarter: 2025Q4

REPORT INFORMATION
  Report Type: Spontaneous
  Country: EU (occurrence: EU)
  Receive Date: 20251006
  Receipt Date: 20251012
  Transmission Date: 20260118
  Serious: Yes (Hospitalization, Other)
  Sender: JOHNSON AND JOHNSON
  Company Number: EU-JNJFOC-20250718971

PATIENT
  Age: 17 Year
  Sex: Female

DRUGS (13)
  1. RISPERIDONE [Suspect]
     Active Substance: RISPERIDONE
     Indication: Mixed anxiety and depressive disorder
     Dosage: 1 MILLIGRAM, QD
     Dates: start: 2022
  2. RISPERIDONE [Suspect]
     Active Substance: RISPERIDONE
  3. RISPERIDONE [Suspect]
     Active Substance: RISPERIDONE
  4. RISPERIDONE [Suspect]
     Active Substance: RISPERIDONE
  5. RISPERIDONE [Suspect]
     Active Substance: RISPERIDONE
  6. RISPERIDONE [Suspect]
     Active Substance: RISPERIDONE
  7. SERTRALINE [Suspect]
     Active Substance: SERTRALINE HYDROCHLORIDE
     Indication: Mixed anxiety and depressive disorder
     Dosage: 200 MILLIGRAM, QD
     Dates: start: 202007
  8. FLUOXETINE [Suspect]
     Active Substance: FLUOXETINE HYDROCHLORIDE
     Indication: Mixed anxiety and depressive disorder
     Dosage: 60 MILLIGRAM, QD
  9. QUETIAPINE [Suspect]
     Active Substance: QUETIAPINE
     Indication: Mixed anxiety and depressive disorder
     Dosage: 25 MILLIGRAM, QD
  10. VENLAFAXINE [Suspect]
     Active Substance: VENLAFAXINE HYDROCHLORIDE
     Indication: Mixed anxiety and depressive disorder
     Dosage: 300 MILLIGRAM, QD
     Dates: start: 2022
  11. OLANZAPINE [Suspect]
     Active Substance: OLANZAPINE
     Indication: Mixed anxiety and depressive disorder
     Dosage: UNK
     Dates: start: 202011
  12. ARIPIPRAZOLE [Suspect]
     Active Substance: ARIPIPRAZOLE
     Indication: Mixed anxiety and depressive disorder
     Dosage: 5 MILLIGRAM, QD
     Dates: start: 2022
  13. LITHIUM [Suspect]
     Active Substance: LITHIUM
     Indication: Mixed anxiety and depressive disorder
     Dosage: 800 MILLIGRAM, QD
     Dates: start: 2022

REACTIONS (6)
  - Drug ineffective [Unknown]
  - Sinus tachycardia [Unknown]
  - Self-destructive behaviour [Recovered/Resolved]
  - Suicidal ideation [Recovered/Resolved]
  - Postural orthostatic tachycardia syndrome [Unknown]
  - Affective disorder [Recovering/Resolving]

NARRATIVE: CASE EVENT DATE: 20200701
